FAERS Safety Report 7325626-7 (Version None)
Quarter: 2011Q1

REPORT INFORMATION
  Report Type: 
  Country: None (occurrence: None)
  Receive Date: 20110302
  Receipt Date: 20110224
  Transmission Date: 20110831
  Serious: Yes (Other)
  Sender: FDA-Public Use
  Company Number: JP-PFIZER INC-2011022300

PATIENT
  Age: 87 Year
  Sex: Female
  Weight: 40 kg

DRUGS (9)
  1. SIGMART [Concomitant]
     Dosage: 5 MG, 2X/DAY
     Dates: start: 20050419, end: 20110113
  2. HERBESSER R [Concomitant]
     Dosage: 100 MG, 1X/DAY
     Dates: start: 20050419, end: 20110113
  3. CELECOXIB [Concomitant]
     Indication: PAIN
     Dosage: 100 MG, 2X/DAY
     Route: 048
     Dates: start: 20101105
  4. BETAMETHASONE [Concomitant]
     Indication: PAIN
     Dosage: 4 MG, 2X/DAY
     Route: 048
     Dates: start: 20110119
  5. CRESTOR [Concomitant]
     Dosage: 2.5 MG, 1X/DAY
     Dates: start: 20080117, end: 20110113
  6. OPSO [Concomitant]
     Dosage: UNK
     Dates: start: 20101201
  7. MYSLEE [Concomitant]
     Indication: INSOMNIA
     Dosage: UNK
     Dates: start: 20050419
  8. GABAPEN [Suspect]
     Indication: ANALGESIC THERAPY
     Dosage: 200 MG, 1X/DAY
     Route: 048
     Dates: start: 20101207, end: 20110131
  9. AMLODIPINE [Concomitant]
     Dosage: 5 MG, 1X/DAY
     Dates: start: 20050419, end: 20110113

REACTIONS (1)
  - COMA HEPATIC [None]
